APPROVED DRUG PRODUCT: TOPAMAX
Active Ingredient: TOPIRAMATE
Strength: 400MG
Dosage Form/Route: TABLET;ORAL
Application: N020505 | Product #006
Applicant: JANSSEN PHARMACEUTICALS INC
Approved: Dec 24, 1996 | RLD: No | RS: No | Type: DISCN